FAERS Safety Report 11511670 (Version 1)
Quarter: 2015Q3

REPORT INFORMATION
  Report Type: Spontaneous
  Country: US (occurrence: US)
  Receive Date: 20150915
  Receipt Date: 20150915
  Transmission Date: 20151125
  Serious: Yes (Other)
  Sender: FDA-Public Use
  Company Number: US-TAKEDA-TPA2013A07462

PATIENT

DRUGS (8)
  1. AMARYL [Concomitant]
     Active Substance: GLIMEPIRIDE
     Dosage: 4 MG, UNK
     Dates: start: 2004, end: 2010
  2. LANTUS [Concomitant]
     Active Substance: INSULIN GLARGINE
     Dosage: 60 IU, UNK
     Dates: start: 2012
  3. GLUCOPHAGE [Concomitant]
     Active Substance: METFORMIN HYDROCHLORIDE
     Dosage: 2000 MG, UNK
     Dates: start: 2001
  4. METFORMIN [Concomitant]
     Active Substance: METFORMIN HYDROCHLORIDE
     Dosage: 1000 MG, UNK
     Dates: start: 2004, end: 2010
  5. JANUVIA [Concomitant]
     Active Substance: SITAGLIPTIN PHOSPHATE
     Dosage: 50 MG, UNK
     Dates: start: 2011
  6. NOVOLOG [Concomitant]
     Active Substance: INSULIN ASPART
     Indication: DIABETES MELLITUS
     Dosage: 78 IU, QD
     Dates: start: 2014
  7. AMARYL [Concomitant]
     Active Substance: GLIMEPIRIDE
     Dosage: 2 MG, UNK
     Dates: start: 1995
  8. ACTOS [Suspect]
     Active Substance: PIOGLITAZONE HYDROCHLORIDE
     Indication: TYPE 2 DIABETES MELLITUS
     Dosage: 30MG, 45MG, UNK
     Route: 048
     Dates: start: 200103, end: 201107

REACTIONS (1)
  - Bladder cancer [Unknown]

NARRATIVE: CASE EVENT DATE: 20060817
